FAERS Safety Report 4877723-3 (Version None)
Quarter: 2006Q1

REPORT INFORMATION
  Report Type: 
  Country: None (occurrence: None)
  Receive Date: 20060109
  Receipt Date: 20051227
  Transmission Date: 20060701
  Serious: Yes (Hospitalization, Other)
  Sender: FDA-Public Use
  Company Number: 2005165397

PATIENT
  Age: 77 Year
  Sex: Female
  Weight: 58.0604 kg

DRUGS (10)
  1. ZOLOFT [Suspect]
     Indication: DEPRESSION
     Dosage: 25 MG (25 MG, 1 IN 1 D),
     Dates: end: 20051130
  2. NEURONTIN [Suspect]
     Indication: ILL-DEFINED DISORDER
     Dosage: 100 MG (100 MG, 1 IN 1 D),
     Dates: end: 20051130
  3. PREDNISONE [Suspect]
     Indication: ILL-DEFINED DISORDER
  4. IBUPROFEN [Suspect]
     Indication: ILL-DEFINED DISORDER
  5. ZANTAC [Concomitant]
  6. GLUCOSAMINE W/CHONDROITIN SULFATES (ASCORBIC ACID, CHONDROITIN SULFATE [Concomitant]
  7. NASONEX [Concomitant]
  8. SYNTHROID [Concomitant]
  9. MULTIVITAMIN [Concomitant]
  10. CALCIUM (CALCIUM) [Concomitant]

REACTIONS (6)
  - APPENDICITIS [None]
  - DEPRESSION [None]
  - DRUG HYPERSENSITIVITY [None]
  - DRUG INTERACTION [None]
  - NAUSEA [None]
  - PANCREATITIS [None]
